FAERS Safety Report 7506850-7 (Version None)
Quarter: 2011Q2

REPORT INFORMATION
  Report Type: 
  Country: None (occurrence: None)
  Receive Date: 20110526
  Receipt Date: 20110518
  Transmission Date: 20111010
  Serious: Yes (Life-Threatening)
  Sender: FDA-Public Use
  Company Number: B0720603A

PATIENT
  Age: 70 Year
  Sex: Male
  Weight: 65 kg

DRUGS (3)
  1. UNKNOWN DRUG [Concomitant]
     Dosage: 1.8ML PER DAY
  2. CEFUROXIME AXETIL [Suspect]
     Route: 048
     Dates: start: 20110506
  3. LEFTOSE [Concomitant]
     Dosage: 50MG PER DAY
     Route: 065

REACTIONS (1)
  - ANAPHYLACTIC SHOCK [None]
